FAERS Safety Report 17980010 (Version 1)
Quarter: 2020Q3

REPORT INFORMATION
  Report Type: Spontaneous
  Country: FR (occurrence: FR)
  Receive Date: 20200703
  Receipt Date: 20200703
  Transmission Date: 20201103
  Serious: Yes (Death)
  Sender: FDA-Public Use
  Company Number: FR-MYLANLABS-2020M1059799

PATIENT
  Age: 67 Year
  Sex: Female
  Weight: 54 kg

DRUGS (3)
  1. ATORVASTATIN [Suspect]
     Active Substance: ATORVASTATIN
     Indication: DYSLIPIDAEMIA
     Dosage: UNK(INCONNUE)
     Route: 048
     Dates: end: 202003
  2. CITALOPRAM [Suspect]
     Active Substance: CITALOPRAM HYDROBROMIDE
     Indication: DEPRESSION
     Dosage: UNK(INCONNUE)
     Route: 048
     Dates: end: 202003
  3. LEXOMIL [Suspect]
     Active Substance: BROMAZEPAM
     Indication: DEPRESSION
     Dosage: UNK(INCONNUE)
     Route: 048
     Dates: end: 202003

REACTIONS (2)
  - Hepatic failure [Fatal]
  - Hepatitis acute [Fatal]

NARRATIVE: CASE EVENT DATE: 202003
